FAERS Safety Report 16038981 (Version 1)
Quarter: 2019Q1

REPORT INFORMATION
  Report Type: Spontaneous
  Country: CN (occurrence: CN)
  Receive Date: 20190306
  Receipt Date: 20190306
  Transmission Date: 20190418
  Serious: Yes (Other)
  Sender: FDA-Public Use
  Company Number: PHHY2019CN047752

PATIENT
  Age: 55 Year
  Sex: Female
  Weight: 75 kg

DRUGS (3)
  1. TEGRETOL [Suspect]
     Active Substance: CARBAMAZEPINE
     Indication: DEMYELINATION
     Dosage: 0.1 G, TID
     Route: 048
     Dates: start: 20181121, end: 20181216
  2. ZANTAC [Concomitant]
     Active Substance: RANITIDINE HYDROCHLORIDE
     Indication: DEMYELINATION
     Dosage: 50 MG, BID
     Route: 048
     Dates: start: 20181121, end: 20181228
  3. LYRICA [Concomitant]
     Active Substance: PREGABALIN
     Indication: PAIN MANAGEMENT
     Dosage: 75 MG, BID
     Route: 048
     Dates: start: 20181121, end: 20181219

REACTIONS (2)
  - Rash maculo-papular [Recovering/Resolving]
  - Herpes zoster [Recovering/Resolving]

NARRATIVE: CASE EVENT DATE: 20181212
